FAERS Safety Report 19191361 (Version 3)
Quarter: 2021Q2

REPORT INFORMATION
  Report Type: Spontaneous
  Country: US (occurrence: US)
  Receive Date: 20210428
  Receipt Date: 20210528
  Transmission Date: 20210717
  Serious: Yes (Hospitalization, Other)
  Sender: FDA-Public Use
  Company Number: US-ABBVIE-21K-163-3874609-00

PATIENT
  Sex: Female
  Weight: 89.44 kg

DRUGS (3)
  1. SYNTHROID [Suspect]
     Active Substance: LEVOTHYROXINE SODIUM
     Indication: HYPOTHYROIDISM
     Route: 048
     Dates: start: 2011
  2. LEVOTHYROXINE. [Suspect]
     Active Substance: LEVOTHYROXINE
     Indication: HYPOTHYROIDISM
     Route: 048
     Dates: start: 200505, end: 201206
  3. LEVOTHYROXINE. [Suspect]
     Active Substance: LEVOTHYROXINE
     Route: 048
     Dates: start: 2012

REACTIONS (8)
  - Malabsorption [Not Recovered/Not Resolved]
  - Drug ineffective [Not Recovered/Not Resolved]
  - Thyroid mass [Unknown]
  - Thyroid function test abnormal [Unknown]
  - Autoimmune thyroiditis [Unknown]
  - Gastric bypass [Unknown]
  - Drug ineffective [Unknown]
  - Thyroid mass [Recovered/Resolved]

NARRATIVE: CASE EVENT DATE: 2005
